FAERS Safety Report 4930206-4 (Version None)
Quarter: 2006Q1

REPORT INFORMATION
  Report Type: 
  Country: None (occurrence: None)
  Receive Date: 20060228
  Receipt Date: 20060204
  Transmission Date: 20060701
  Serious: Yes (Hospitalization, Other)
  Sender: FDA-Public Use
  Company Number: DE200602001168

PATIENT
  Age: 73 Year
  Sex: Male

DRUGS (4)
  1. CIALIS [Suspect]
     Indication: ERECTILE DYSFUNCTION
     Dosage: 20 MG, AS NEEDED, ORAL
     Route: 048
     Dates: start: 20030717, end: 20060120
  2. RAMIPRIL [Concomitant]
  3. THYRONAJOD (LEVOTHYROXINE SODIUM, POTASSIUM IODIDE) [Concomitant]
  4. BETA BLOCKING AGENTS [Concomitant]

REACTIONS (3)
  - ATRIAL FIBRILLATION [None]
  - HYPERTENSIVE HEART DISEASE [None]
  - SYNCOPE [None]
